FAERS Safety Report 6167527-6 (Version None)
Quarter: 2009Q2

REPORT INFORMATION
  Report Type: 
  Country: None (occurrence: None)
  Receive Date: 20090424
  Receipt Date: 20080708
  Transmission Date: 20091009
  Serious: No
  Sender: FDA-Public Use
  Company Number: A0737793A

PATIENT
  Age: 72 Year
  Sex: Female

DRUGS (4)
  1. FLOVENT [Suspect]
     Indication: CHRONIC OBSTRUCTIVE PULMONARY DISEASE
     Route: 055
  2. SYNTHROID [Concomitant]
  3. ESTRACE [Concomitant]
  4. VITAMINS [Concomitant]

REACTIONS (1)
  - URTICARIA [None]
